FAERS Safety Report 7372229-4 (Version None)
Quarter: 2011Q1

REPORT INFORMATION
  Report Type: 
  Country: None (occurrence: None)
  Receive Date: 20110322
  Receipt Date: 20110322
  Transmission Date: 20110831
  Serious: Yes (Hospitalization)
  Sender: FDA-Public Use
  Company Number: None

PATIENT
  Age: 73 Year
  Sex: Male
  Weight: 91.3 kg

DRUGS (13)
  1. FUROSEMIDE [Concomitant]
  2. PANTOPRAZOLE [Concomitant]
  3. PREDNISONE [Concomitant]
  4. NEORAL [Suspect]
     Indication: RENAL TRANSPLANT
     Dosage: 75MG BID ORAL
     Route: 048
     Dates: start: 19910823
  5. ASPIRIN [Concomitant]
  6. METOPROLOL SUCCINATE [Concomitant]
  7. PRADAXA [Suspect]
     Indication: HEART VALVE REPLACEMENT
     Dosage: 75MG BID ORAL
     Route: 048
     Dates: start: 20110117, end: 20110301
  8. PRADAXA [Suspect]
     Indication: ATRIAL FIBRILLATION
     Dosage: 75MG BID ORAL
     Route: 048
     Dates: start: 20110117, end: 20110301
  9. INSULIN [Concomitant]
  10. ALLOPURINOL [Concomitant]
  11. GABAPENTIN [Concomitant]
  12. ISOSORBIDE MONONITRATE [Concomitant]
  13. IRON [Concomitant]

REACTIONS (5)
  - CONTUSION [None]
  - ACTIVATED PARTIAL THROMBOPLASTIN TIME PROLONGED [None]
  - OVERDOSE [None]
  - INCREASED TENDENCY TO BRUISE [None]
  - INTERNATIONAL NORMALISED RATIO INCREASED [None]
